FAERS Safety Report 4445313-2 (Version None)
Quarter: 2004Q3

REPORT INFORMATION
  Report Type: 
  Country: None (occurrence: None)
  Receive Date: 20040903
  Receipt Date: 20040825
  Transmission Date: 20050211
  Serious: Yes (Life-Threatening, Hospitalization, Disabling, Congenital Anomaly)
  Sender: FDA-Public Use
  Company Number: 2003-07-1061

PATIENT
  Age: 56 Year
  Sex: Female
  Weight: 62 kg

DRUGS (4)
  1. INTRON A [Suspect]
     Indication: MALIGNANT MELANOMA
     Dosage: 3-4.5 MIU* SUBCUTANEOUS
     Route: 058
     Dates: start: 20030301, end: 20030530
  2. INTRON A [Suspect]
     Indication: MALIGNANT MELANOMA
     Dosage: 3-4.5 MIU* SUBCUTANEOUS
     Route: 058
     Dates: start: 20030301, end: 20030701
  3. INTRON A [Suspect]
     Indication: MALIGNANT MELANOMA
     Dosage: 3-4.5 MIU* SUBCUTANEOUS
     Route: 058
     Dates: start: 20030531, end: 20030701
  4. BISOPROLOL FUMARATE/HYDROCHLORTHIAZIDE TABLETS [Concomitant]

REACTIONS (6)
  - AUTOIMMUNE THYROIDITIS [None]
  - MYASTHENIA GRAVIS [None]
  - SALMONELLOSIS [None]
  - SKIN SWELLING [None]
  - SWELLING FACE [None]
  - URTICARIA [None]
